APPROVED DRUG PRODUCT: CHLORTHALIDONE
Active Ingredient: CHLORTHALIDONE
Strength: 25MG
Dosage Form/Route: TABLET;ORAL
Application: A210742 | Product #001 | TE Code: AB
Applicant: APPCO PHARMA LLC
Approved: Oct 12, 2018 | RLD: No | RS: No | Type: RX